FAERS Safety Report 6997118-6 (Version None)
Quarter: 2010Q3

REPORT INFORMATION
  Report Type: 
  Country: None (occurrence: None)
  Receive Date: 20100918
  Receipt Date: 20090930
  Transmission Date: 20110219
  Serious: No
  Sender: FDA-Public Use
  Company Number: US-WYE-H10807409

PATIENT
  Sex: Male

DRUGS (6)
  1. PRISTIQ [Suspect]
     Indication: DEPRESSION
  2. PRISTIQ [Suspect]
     Route: 048
  3. AMARYL [Concomitant]
  4. ZOCOR [Concomitant]
  5. METOPROLOL [Concomitant]
  6. LISINOPRIL [Concomitant]

REACTIONS (1)
  - NAUSEA [None]
